FAERS Safety Report 20249374 (Version 2)
Quarter: 2022Q4

REPORT INFORMATION
  Report Type: Spontaneous
  Country: US (occurrence: US)
  Receive Date: 20211229
  Receipt Date: 20221022
  Transmission Date: 20230112
  Serious: Yes (Other)
  Sender: FDA-Public Use
  Company Number: US-SA-SAC20211227001221

PATIENT
  Age: 44 Year
  Sex: Female

DRUGS (1)
  1. ZANTAC [Suspect]
     Active Substance: RANITIDINE HYDROCHLORIDE
     Indication: Abdominal discomfort
     Dosage: 75 UNK, QD
     Route: 048
     Dates: start: 201602, end: 201905

REACTIONS (4)
  - Colorectal cancer [Unknown]
  - Gastric cancer [Unknown]
  - Gastrointestinal carcinoma [Not Recovered/Not Resolved]
  - Small intestine carcinoma [Unknown]

NARRATIVE: CASE EVENT DATE: 20190601
